FAERS Safety Report 25437539 (Version 1)
Quarter: 2025Q2

REPORT INFORMATION
  Report Type: Other
  Country: CN (occurrence: CN)
  Receive Date: 20250616
  Receipt Date: 20250616
  Transmission Date: 20250717
  Serious: Yes (Other)
  Sender: QILU PHARMACEUTICAL
  Company Number: CN-QILU PHARMACEUTICAL CO.LTD.-QLU-000120-2025

PATIENT
  Age: 39 Year
  Sex: Female
  Weight: 71 kg

DRUGS (2)
  1. TENOFOVIR DISOPROXIL FUMARATE [Suspect]
     Active Substance: TENOFOVIR DISOPROXIL FUMARATE
     Indication: Chronic hepatitis B
     Dosage: 0.3 G ONCE A DAY
     Route: 048
     Dates: start: 20241014
  2. PEGINTERFERON ALFA-2B [Suspect]
     Active Substance: PEGINTERFERON ALFA-2B
     Indication: Chronic hepatitis B
     Route: 058
     Dates: start: 20241014

REACTIONS (1)
  - Anti-thyroid antibody increased [Unknown]

NARRATIVE: CASE EVENT DATE: 20250527
